FAERS Safety Report 16460859 (Version 2)
Quarter: 2019Q3

REPORT INFORMATION
  Report Type: Spontaneous
  Country: VN (occurrence: VN)
  Receive Date: 20190620
  Receipt Date: 20190710
  Transmission Date: 20191004
  Serious: Yes (Life-Threatening, Hospitalization)
  Sender: FDA-Public Use
  Company Number: VN-GE HEALTHCARE LIFE SCIENCES-2019CSU003146

PATIENT

DRUGS (2)
  1. OMNIPAQUE [Suspect]
     Active Substance: IOHEXOL
     Indication: COMPUTERISED TOMOGRAM ABDOMEN
     Dosage: 70 ML, SINGLE
     Route: 042
     Dates: start: 20190610, end: 20190610
  2. OMNIPAQUE [Suspect]
     Active Substance: IOHEXOL
     Indication: MALIGNANT NEOPLASM OF RENAL PELVIS

REACTIONS (1)
  - Anaphylactic reaction [Recovered/Resolved]

NARRATIVE: CASE EVENT DATE: 20190610
